FAERS Safety Report 4487971-2 (Version None)
Quarter: 2004Q4

REPORT INFORMATION
  Report Type: 
  Country: None (occurrence: None)
  Receive Date: 20041028
  Receipt Date: 20041018
  Transmission Date: 20050328
  Serious: Yes (Other)
  Sender: FDA-Public Use
  Company Number: US-JNJFOC-20041005885

PATIENT
  Sex: Female
  Weight: 87.09 kg

DRUGS (4)
  1. REMICADE [Suspect]
     Indication: CROHN'S DISEASE
     Route: 042
  2. BIRTH CONTROL [Concomitant]
  3. PROTONIX [Concomitant]
  4. INDERAL [Concomitant]

REACTIONS (3)
  - CARPAL TUNNEL SYNDROME [None]
  - DYSPNOEA [None]
  - RASH [None]
